FAERS Safety Report 8267497-0 (Version None)
Quarter: 2012Q2

REPORT INFORMATION
  Report Type: 
  Country: None (occurrence: None)
  Receive Date: 20120405
  Receipt Date: 20120405
  Transmission Date: 20120825
  Serious: No
  Sender: FDA-Public Use
  Company Number: None

PATIENT
  Sex: Female
  Weight: 125.9 kg

DRUGS (2)
  1. OCTREOTIDE ACETATE [Suspect]
     Indication: CARCINOID SYNDROME
     Dosage: 2 CC HOURLY SUBCUTANEOUS
     Route: 058
     Dates: start: 20111001
  2. OCTREOTIDE ACETATE [Suspect]
     Indication: ACROMEGALY
     Dosage: 2 CC HOURLY SUBCUTANEOUS
     Route: 058
     Dates: start: 20111001

REACTIONS (4)
  - INFUSION SITE HAEMATOMA [None]
  - PRODUCT QUALITY ISSUE [None]
  - INFUSION SITE PAIN [None]
  - INFUSION SITE ERYTHEMA [None]
